FAERS Safety Report 6494308-6 (Version None)
Quarter: 2009Q4

REPORT INFORMATION
  Report Type: 
  Country: None (occurrence: None)
  Receive Date: 20091214
  Receipt Date: 20090206
  Transmission Date: 20100525
  Serious: No
  Sender: FDA-Public Use
  Company Number: US-BRISTOL-MYERS SQUIBB COMPANY-14496509

PATIENT
  Age: 15 Year
  Sex: Male

DRUGS (4)
  1. ABILIFY [Suspect]
  2. COGENTIN [Concomitant]
  3. STRATTERA [Concomitant]
  4. NEXIUM [Concomitant]

REACTIONS (6)
  - FEELING ABNORMAL [None]
  - IRRITABILITY [None]
  - MUSCULOSKELETAL STIFFNESS [None]
  - PAIN IN EXTREMITY [None]
  - RASH [None]
  - RESTLESSNESS [None]
